FAERS Safety Report 7345486-8 (Version None)
Quarter: 2011Q1

REPORT INFORMATION
  Report Type: 
  Country: None (occurrence: None)
  Receive Date: 20110310
  Receipt Date: 20110310
  Transmission Date: 20110831
  Serious: Yes (Hospitalization)
  Sender: FDA-Public Use
  Company Number: PHHO2010US14309

PATIENT
  Sex: Male
  Weight: 153.3 kg

DRUGS (5)
  1. ANAESTHETICS [Suspect]
  2. METFORMIN [Concomitant]
  3. BENICAR HCT [Concomitant]
  4. CALAN - SLOW RELEASE [Concomitant]
  5. ACZ885 [Suspect]
     Indication: DIABETES MELLITUS
     Dosage: 50 MG, UNK
     Route: 042
     Dates: start: 20100511

REACTIONS (10)
  - CHOLECYSTECTOMY [None]
  - ABDOMINAL PAIN UPPER [None]
  - RENAL FAILURE ACUTE [None]
  - HYPOPERFUSION [None]
  - CHOLELITHIASIS [None]
  - PYREXIA [None]
  - BILE DUCT STENOSIS [None]
  - CONDITION AGGRAVATED [None]
  - CONCOMITANT DISEASE PROGRESSION [None]
  - CHOLECYSTITIS ACUTE [None]
